FAERS Safety Report 7249799-X (Version None)
Quarter: 2011Q1

REPORT INFORMATION
  Report Type: 
  Country: None (occurrence: None)
  Receive Date: 20110128
  Receipt Date: 20100405
  Transmission Date: 20110831
  Serious: No
  Sender: FDA-Public Use
  Company Number: A0853999A

PATIENT
  Age: 54 Year
  Sex: Male
  Weight: 102.3 kg

DRUGS (10)
  1. CITALOPRAM HYDROBROMIDE [Suspect]
     Indication: PANIC ATTACK
     Dosage: 20MG PER DAY
     Dates: start: 20100309
  2. LIV 52 [Concomitant]
  3. CHANTIX [Suspect]
     Dosage: 1MG TWICE PER DAY
     Route: 048
     Dates: end: 20100305
  4. WELLBUTRIN [Suspect]
     Route: 065
  5. ALEVE [Concomitant]
  6. ASPIRIN [Concomitant]
     Dosage: 81MG PER DAY
  7. KAPIDEX [Concomitant]
     Dosage: 60MG PER DAY
  8. LISINOPRIL AND HYDROCHLOROTHIAZIDE [Concomitant]
  9. FELODIPINE [Concomitant]
     Dosage: 5MG PER DAY
  10. METOPROLOL TARTRATE [Concomitant]
     Dosage: 50MG PER DAY
     Dates: end: 20100310

REACTIONS (12)
  - MOOD SWINGS [None]
  - DISABILITY [None]
  - TOBACCO USER [None]
  - DISTURBANCE IN ATTENTION [None]
  - MEMORY IMPAIRMENT [None]
  - DYSSTASIA [None]
  - PANIC ATTACK [None]
  - ABNORMAL DREAMS [None]
  - ANXIETY [None]
  - NERVOUSNESS [None]
  - DECREASED APPETITE [None]
  - EMOTIONAL DISTRESS [None]
